FAERS Safety Report 24061857 (Version 1)
Quarter: 2024Q3

REPORT INFORMATION
  Report Type: Spontaneous
  Country: US (occurrence: None)
  Receive Date: 20240708
  Receipt Date: 20240708
  Transmission Date: 20241017
  Serious: Yes (Hospitalization)
  Sender: Public
  Company Number: None

PATIENT
  Sex: Male

DRUGS (5)
  1. ABIRATERONE ACETATE [Suspect]
     Active Substance: ABIRATERONE ACETATE
     Indication: Prostate cancer
     Dosage: FREQUENCY : DAILY;?
     Route: 048
     Dates: start: 202405
  2. PREDNISONE [Concomitant]
  3. TAMSULOSIN [Concomitant]
  4. IBUPROFEN [Concomitant]
  5. OXYCODONE [Concomitant]

REACTIONS (2)
  - Haemorrhage [None]
  - Pain [None]
